FAERS Safety Report 4808429-4 (Version None)
Quarter: 2005Q4

REPORT INFORMATION
  Report Type: 
  Country: None (occurrence: None)
  Receive Date: 20051021
  Receipt Date: 20041210
  Transmission Date: 20060501
  Serious: Yes (Hospitalization)
  Sender: FDA-Public Use
  Company Number: EWC041241863

PATIENT
  Age: 89 Year
  Sex: Female

DRUGS (5)
  1. ZYPREXA [Suspect]
     Indication: DEMENTIA
     Dosage: 5 MG/2 DAY
     Dates: start: 20041001, end: 20041122
  2. CORUNO (MOLSIDOMINE) [Concomitant]
  3. ACETYLSALICYLIC ACID SRT [Concomitant]
  4. TRAZOLAN (RRAZODONE HYDROCHLORIDE) [Concomitant]
  5. DIPIPERON (PIPAMPERONE HYDROCHLORIDE) [Concomitant]

REACTIONS (1)
  - THROMBOTIC STROKE [None]
